FAERS Safety Report 18096160 (Version 2)
Quarter: 2020Q3

REPORT INFORMATION
  Report Type: Spontaneous
  Country: US (occurrence: US)
  Receive Date: 20200731
  Receipt Date: 20200731
  Transmission Date: 20201103
  Serious: Yes (Other)
  Sender: FDA-Public Use
  Company Number: US-GILEAD-2020-0486103

PATIENT
  Sex: Female

DRUGS (1)
  1. TRUVADA [Suspect]
     Active Substance: EMTRICITABINE\TENOFOVIR DISOPROXIL FUMARATE
     Indication: HIV INFECTION
     Dosage: UNK
     Route: 048
     Dates: start: 200801, end: 201401

REACTIONS (7)
  - Bone density decreased [Unknown]
  - Maternal exposure during pregnancy [Recovered/Resolved]
  - Tooth loss [Unknown]
  - Paralysis [Unknown]
  - Abortion spontaneous [Unknown]
  - Surgery [Unknown]
  - Renal failure [Unknown]
